FAERS Safety Report 20438630 (Version 1)
Quarter: 2022Q1

REPORT INFORMATION
  Report Type: Spontaneous
  Country: US (occurrence: None)
  Receive Date: 20220204
  Receipt Date: 20220204
  Transmission Date: 20220423
  Serious: Yes (Death)
  Sender: FDA-Public Use
  Company Number: None

PATIENT
  Age: 57 Year
  Sex: Male

DRUGS (1)
  1. AUSTEDO [Suspect]
     Active Substance: DEUTETRABENAZINE
     Indication: Parkinson^s disease
     Dosage: FREQUENCY : TWICE A DAY;?
     Route: 048
     Dates: start: 201911

REACTIONS (1)
  - Road traffic accident [None]

NARRATIVE: CASE EVENT DATE: 20220120
